FAERS Safety Report 5982966-1 (Version None)
Quarter: 2008Q4

REPORT INFORMATION
  Report Type: 
  Country: None (occurrence: None)
  Receive Date: 20081205
  Receipt Date: 20081205
  Transmission Date: 20090506
  Serious: Yes (Disabling, Other)
  Sender: FDA-Public Use
  Company Number: None

PATIENT
  Age: 68 Year
  Sex: Female
  Weight: 90.7194 kg

DRUGS (1)
  1. LEVETIRAC 500 MG MYLAN [Suspect]
     Dosage: 500MG 2X/DAY
     Dates: start: 20081120, end: 20081201

REACTIONS (5)
  - MOOD SWINGS [None]
  - PAIN [None]
  - PERIORBITAL HAEMATOMA [None]
  - RENAL PAIN [None]
  - THERAPEUTIC RESPONSE UNEXPECTED WITH DRUG SUBSTITUTION [None]
